FAERS Safety Report 17372282 (Version 2)
Quarter: 2020Q1

REPORT INFORMATION
  Report Type: Spontaneous
  Country: US (occurrence: US)
  Receive Date: 20200205
  Receipt Date: 20200206
  Transmission Date: 20200409
  Serious: Yes (Other)
  Sender: FDA-Public Use
  Company Number: US-ABBVIE-20K-163-3247519-00

PATIENT
  Sex: Male

DRUGS (1)
  1. MAVYRET [Suspect]
     Active Substance: GLECAPREVIR\PIBRENTASVIR
     Indication: HEPATITIS
     Dosage: 100-40MG
     Route: 048
     Dates: start: 20190607, end: 201907

REACTIONS (3)
  - Intra-abdominal fluid collection [Unknown]
  - Weight increased [Unknown]
  - Hepatic failure [Unknown]

NARRATIVE: CASE EVENT DATE: 201907
